FAERS Safety Report 9300368 (Version 3)
Quarter: 2013Q2

REPORT INFORMATION
  Report Type: Spontaneous
  Country: US (occurrence: US)
  Receive Date: 20130521
  Receipt Date: 20130627
  Transmission Date: 20140414
  Serious: Yes (Other)
  Sender: FDA-Public Use
  Company Number: US-PFIZER INC-2013154649

PATIENT
  Age: 31 Year
  Sex: Female

DRUGS (1)
  1. LYRICA [Suspect]
     Dosage: 150 MG (75MG - 2 CAPSULES), 2X/DAY

REACTIONS (3)
  - Cardiac disorder [Unknown]
  - Weight increased [Unknown]
  - Speech disorder [Unknown]
